FAERS Safety Report 4323111-8 (Version None)
Quarter: 2004Q1

REPORT INFORMATION
  Report Type: 
  Country: None (occurrence: None)
  Receive Date: 20040325
  Receipt Date: 20011016
  Transmission Date: 20041129
  Serious: Yes (Hospitalization, Other)
  Sender: FDA-Public Use
  Company Number: US-BRISTOL-MYERS SQUIBB COMPANY-11537164

PATIENT
  Age: 26 Year
  Sex: Female

DRUGS (3)
  1. STADOL [Suspect]
     Indication: MIGRAINE
     Route: 030
     Dates: start: 19890101
  2. STADOL [Suspect]
     Indication: MIGRAINE
     Route: 045
  3. PHENERGAN [Concomitant]
     Route: 030

REACTIONS (4)
  - DEPENDENCE [None]
  - PHOTOPHOBIA [None]
  - SUICIDE ATTEMPT [None]
  - VISION BLURRED [None]
